FAERS Safety Report 5305550-1 (Version None)
Quarter: 2007Q2

REPORT INFORMATION
  Report Type: 
  Country: None (occurrence: None)
  Receive Date: 20070424
  Receipt Date: 20070416
  Transmission Date: 20071010
  Serious: Yes (Other)
  Sender: FDA-Public Use
  Company Number: VN-BRISTOL-MYERS SQUIBB COMPANY-13756895

PATIENT
  Age: 63 Year
  Sex: Male

DRUGS (1)
  1. GLUCOPHAGE [Suspect]
     Indication: DIABETES MELLITUS
     Route: 048

REACTIONS (3)
  - DIARRHOEA [None]
  - FATIGUE [None]
  - RENAL FAILURE [None]
